FAERS Safety Report 25620838 (Version 2)
Quarter: 2025Q3

REPORT INFORMATION
  Report Type: Spontaneous
  Country: IN (occurrence: IN)
  Receive Date: 20250730
  Receipt Date: 20250819
  Transmission Date: 20251020
  Serious: Yes (Other)
  Sender: HETERO
  Company Number: IN-HETERO-HET2025IN04263

PATIENT
  Age: 47 Year
  Sex: Male

DRUGS (14)
  1. IVABRADINE [Suspect]
     Active Substance: IVABRADINE
     Indication: Product used for unknown indication
     Route: 048
     Dates: end: 20250715
  2. DEPLATT-A [Concomitant]
     Indication: Product used for unknown indication
     Route: 048
  3. ATORVASTATIN CALCIUM [Concomitant]
     Active Substance: ATORVASTATIN CALCIUM
     Indication: Product used for unknown indication
     Route: 048
  4. MET XL [Concomitant]
     Indication: Product used for unknown indication
     Route: 048
  5. LASIX [Concomitant]
     Active Substance: FUROSEMIDE
     Indication: Product used for unknown indication
     Route: 048
  6. FUROSEMIDE\SPIRONOLACTONE [Concomitant]
     Active Substance: FUROSEMIDE\SPIRONOLACTONE
     Indication: Product used for unknown indication
     Route: 048
  7. HAEMUP [Concomitant]
     Indication: Product used for unknown indication
     Route: 048
  8. CHYMORAL FORTE [Concomitant]
     Indication: Product used for unknown indication
     Route: 048
  9. CEFUROXIME SODIUM [Concomitant]
     Active Substance: CEFUROXIME SODIUM
     Indication: Product used for unknown indication
     Route: 048
  10. LINID [Concomitant]
     Indication: Product used for unknown indication
     Route: 048
  11. URGENDOL P [Concomitant]
     Indication: Pain
     Route: 048
  12. ASCORBIC ACID [Concomitant]
     Active Substance: ASCORBIC ACID
     Indication: Product used for unknown indication
     Route: 048
  13. ALEX [CHLORPHENAMINE MALEATE;PHENYLEPHRINE HYDROCHLORIDE] [Concomitant]
     Indication: Product used for unknown indication
     Route: 048
  14. GLUCRETA S [Concomitant]
     Indication: Product used for unknown indication
     Route: 065

REACTIONS (5)
  - Back pain [Not Recovered/Not Resolved]
  - Blood glucose increased [Recovered/Resolved]
  - Constipation [Not Recovered/Not Resolved]
  - Nausea [Not Recovered/Not Resolved]
  - Asthenia [Not Recovered/Not Resolved]

NARRATIVE: CASE EVENT DATE: 20250703
